FAERS Safety Report 19953204 (Version 1)
Quarter: 2021Q4

REPORT INFORMATION
  Report Type: Spontaneous
  Country: US (occurrence: US)
  Receive Date: 20211013
  Receipt Date: 20211013
  Transmission Date: 20220303
  Serious: Yes (Disabling)
  Sender: FDA-Public Use
  Company Number: None

PATIENT
  Age: 54 Year
  Sex: Female
  Weight: 67.5 kg

DRUGS (3)
  1. AIMOVIG [Suspect]
     Active Substance: ERENUMAB-AOOE
     Indication: Migraine
     Dosage: ?          QUANTITY:1 SYRINGE;OTHER FREQUENCY:ONCE A MONTH;
     Route: 030
     Dates: start: 20180201, end: 20201101
  2. EMGALITY [Suspect]
     Active Substance: GALCANEZUMAB-GNLM
  3. ZOMIG [Concomitant]
     Active Substance: ZOLMITRIPTAN

REACTIONS (1)
  - Psoriasis [None]

NARRATIVE: CASE EVENT DATE: 20180601
